FAERS Safety Report 4503504-6 (Version None)
Quarter: 2004Q4

REPORT INFORMATION
  Report Type: 
  Country: None (occurrence: None)
  Receive Date: 20041112
  Receipt Date: 20041102
  Transmission Date: 20050328
  Serious: Yes (Hospitalization)
  Sender: FDA-Public Use
  Company Number: 2003153428JP

PATIENT
  Age: 5 Year
  Sex: Male
  Weight: 12.5 kg

DRUGS (2)
  1. GENOTROPIN [Suspect]
     Indication: SMALL FOR DATES BABY
     Dosage: 0.8 MG, QD, SUBCUTANEOUS
     Route: 058
     Dates: start: 20021203, end: 20030323
  2. GENOTROPIN [Suspect]
     Indication: SMALL FOR DATES BABY
     Dosage: 0.8 MG, QD, SUBCUTANEOUS
     Route: 058
     Dates: start: 20030326

REACTIONS (4)
  - CONDITION AGGRAVATED [None]
  - SLEEP APNOEA SYNDROME [None]
  - TONSILLAR DISORDER [None]
  - TONSILLAR HYPERTROPHY [None]
